FAERS Safety Report 22606358 (Version 2)
Quarter: 2023Q2

REPORT INFORMATION
  Report Type: Spontaneous
  Country: IT (occurrence: IT)
  Receive Date: 20230615
  Receipt Date: 20230628
  Transmission Date: 20230722
  Serious: Yes (Other)
  Sender: FDA-Public Use
  Company Number: IT-TEVA-2023-IT-2896762

PATIENT
  Age: 41 Year
  Sex: Female

DRUGS (7)
  1. DOXORUBICIN [Suspect]
     Active Substance: DOXORUBICIN
     Indication: Giant cell tumour of tendon sheath
     Dosage: 75 MG/MQ ON DAY 1
     Route: 042
     Dates: start: 201709
  2. GEMCITABINE [Suspect]
     Active Substance: GEMCITABINE
     Indication: Giant cell tumour of tendon sheath
     Dosage: 1000MG/MQ; DAYS1-8
     Route: 065
     Dates: start: 201809
  3. IMATINIB [Suspect]
     Active Substance: IMATINIB
     Indication: Giant cell tumour of tendon sheath
     Route: 065
     Dates: start: 201804
  4. OLARATUMAB [Suspect]
     Active Substance: OLARATUMAB
     Indication: Giant cell tumour of tendon sheath
     Dosage: ON DAY 1 AND DAY 8
     Route: 042
     Dates: start: 201709
  5. IFOSFAMIDE [Suspect]
     Active Substance: IFOSFAMIDE
     Indication: Giant cell tumour of tendon sheath
     Dosage: 14G/MQ; FOR 14 DAYS EVERY 28 DAYS
     Route: 041
     Dates: start: 201805
  6. PAZOPANIB [Concomitant]
     Active Substance: PAZOPANIB
     Indication: Giant cell tumour of tendon sheath
     Dosage: 800MG/MQ
     Route: 065
     Dates: start: 201711
  7. TRABECTEDIN [Concomitant]
     Active Substance: TRABECTEDIN
     Indication: Giant cell tumour of tendon sheath
     Dosage: 1.5MG/MQ IN 24HOURS
     Route: 050
     Dates: start: 201806

REACTIONS (6)
  - Asthenia [Unknown]
  - Leukopenia [Unknown]
  - Neutropenia [Unknown]
  - Anaemia [Unknown]
  - Drug ineffective [Unknown]
  - Drug ineffective for unapproved indication [Unknown]
